FAERS Safety Report 9844065 (Version 3)
Quarter: 2014Q1

REPORT INFORMATION
  Report Type: Spontaneous
  Country: CA (occurrence: CA)
  Receive Date: 20140127
  Receipt Date: 20140321
  Transmission Date: 20141002
  Serious: Yes (Hospitalization, Other)
  Sender: FDA-Public Use
  Company Number: CA-ROCHE-1335625

PATIENT
  Age: 51 Year
  Sex: Female

DRUGS (8)
  1. RITUXAN [Suspect]
     Indication: AUTOIMMUNE HAEMOLYTIC ANAEMIA
     Route: 042
     Dates: start: 20131219
  2. CALCIUM CARBONATE [Concomitant]
  3. FOLIC ACID [Concomitant]
  4. PANTOPRAZOL [Concomitant]
     Indication: GASTROOESOPHAGEAL REFLUX DISEASE
  5. PREDNISONE [Concomitant]
     Indication: AUTOIMMUNE HAEMOLYTIC ANAEMIA
  6. PREDNISONE [Concomitant]
     Indication: CONNECTIVE TISSUE DISORDER
  7. VITAMIN B12 [Concomitant]
  8. SENOKOT [Concomitant]
     Indication: CONSTIPATION
     Route: 065
     Dates: start: 201310

REACTIONS (9)
  - Haematuria [Unknown]
  - Septic shock [Unknown]
  - Nephrolithiasis [Unknown]
  - Dyspnoea [Recovered/Resolved]
  - Fatigue [Unknown]
  - Dizziness [Recovered/Resolved]
  - Hot flush [Recovered/Resolved]
  - Off label use [Unknown]
  - No therapeutic response [Unknown]
